FAERS Safety Report 16116660 (Version 1)
Quarter: 2019Q1

REPORT INFORMATION
  Report Type: Spontaneous
  Country: ES (occurrence: ES)
  Receive Date: 20190326
  Receipt Date: 20190326
  Transmission Date: 20190418
  Serious: Yes (Life-Threatening, Hospitalization, Congenital Anomaly, Other)
  Sender: FDA-Public Use
  Company Number: ES-AUROBINDO-AUR-APL-2019-014790

PATIENT

DRUGS (2)
  1. OLMESARTAN FILM COATED TABLETS [Suspect]
     Active Substance: OLMESARTAN
     Indication: PRODUCT USED FOR UNKNOWN INDICATION
     Dosage: UNK
     Route: 064
  2. AMLODIPINE [Concomitant]
     Active Substance: AMLODIPINE BESYLATE
     Indication: EXPOSURE DURING PREGNANCY
     Dosage: UNK
     Route: 064

REACTIONS (11)
  - Anuria [Recovered/Resolved]
  - Foetal exposure during pregnancy [Recovered/Resolved]
  - Off label use [Not Recovered/Not Resolved]
  - Pulmonary hypoplasia [Recovering/Resolving]
  - Hypotonia neonatal [Unknown]
  - Areflexia [Unknown]
  - Renal failure [Recovered/Resolved]
  - Pneumothorax [Recovering/Resolving]
  - Potter^s syndrome [Recovering/Resolving]
  - Hypotension [Unknown]
  - Oligohydramnios [Not Recovered/Not Resolved]
